FAERS Safety Report 4765209-6 (Version None)
Quarter: 2005Q3

REPORT INFORMATION
  Report Type: 
  Country: None (occurrence: None)
  Receive Date: 20050906
  Receipt Date: 20050825
  Transmission Date: 20060218
  Serious: Yes (Other)
  Sender: FDA-Public Use
  Company Number: 2005092493

PATIENT
  Sex: Male

DRUGS (3)
  1. CELEBREX [Suspect]
     Indication: RHEUMATOID ARTHRITIS
     Dates: end: 20050208
  2. ETODOLAC [Suspect]
     Indication: RHEUMATOID ARTHRITIS
     Dosage: 900 MG (300 MG, 3 IN 1 D)
     Dates: start: 20050201
  3. TYLENOL [Suspect]
     Indication: RHEUMATOID ARTHRITIS
     Dosage: 2600 MG (650 MG, 1 IN 1 D)
     Dates: start: 20050201

REACTIONS (4)
  - CONDITION AGGRAVATED [None]
  - INGROWING NAIL [None]
  - INSOMNIA [None]
  - RHEUMATOID ARTHRITIS [None]
